FAERS Safety Report 12176065 (Version 2)
Quarter: 2016Q1

REPORT INFORMATION
  Report Type: Spontaneous
  Country: PL (occurrence: PL)
  Receive Date: 20160314
  Receipt Date: 20160317
  Transmission Date: 20160526
  Serious: Yes (Other)
  Sender: FDA-Public Use
  Company Number: PL-PFIZER INC-2016149827

PATIENT
  Age: 30 Year
  Sex: Female

DRUGS (8)
  1. FLUCONAZOLE. [Suspect]
     Active Substance: FLUCONAZOLE
     Indication: SEPSIS
     Dosage: UNK
  2. MYCAMINE [Suspect]
     Active Substance: MICAFUNGIN SODIUM
     Indication: SEPSIS
     Dosage: UNK
  3. TAZOCIN [Suspect]
     Active Substance: PIPERACILLIN SODIUM\TAZOBACTAM SODIUM
     Indication: SEPSIS
     Dosage: UNK
  4. LEVOXA [Suspect]
     Active Substance: LEVOFLOXACIN
     Indication: SEPSIS
     Dosage: UNK
  5. MERONEM [Suspect]
     Active Substance: MEROPENEM
     Indication: SEPSIS
     Dosage: UNK
  6. TARGOCID [Suspect]
     Active Substance: TEICOPLANIN
     Indication: SEPSIS
     Dosage: UNK
  7. COLISTIN [Suspect]
     Active Substance: COLISTIN
     Indication: SEPSIS
     Dosage: UNK
  8. FORTUM /00559702/ [Suspect]
     Active Substance: CEFTAZIDIME
     Indication: SEPSIS
     Dosage: UNK

REACTIONS (1)
  - Bacteraemia [Recovered/Resolved]

NARRATIVE: CASE EVENT DATE: 20160130
